FAERS Safety Report 9467126 (Version 2)
Quarter: 2013Q3

REPORT INFORMATION
  Report Type: Spontaneous
  Country: US (occurrence: US)
  Receive Date: 20130820
  Receipt Date: 20130916
  Transmission Date: 20140515
  Serious: Yes (Hospitalization)
  Sender: FDA-Public Use
  Company Number: US-B.I. PHARMACEUTICALS,INC./RIDGEFIELD-2013-BI-25617BP

PATIENT
  Sex: Female
  Weight: 94.35 kg

DRUGS (1)
  1. PRADAXA [Suspect]
     Indication: ATRIAL FIBRILLATION
     Dosage: 300 MG
     Route: 048
     Dates: start: 20120113, end: 201203

REACTIONS (4)
  - Aneurysm [Unknown]
  - Anaemia [Recovered/Resolved]
  - Gastritis erosive [Unknown]
  - Gastrointestinal haemorrhage [Unknown]
